FAERS Safety Report 5618702-8 (Version None)
Quarter: 2008Q1

REPORT INFORMATION
  Report Type: 
  Country: None (occurrence: None)
  Receive Date: 20080205
  Receipt Date: 20080205
  Transmission Date: 20080703
  Serious: Yes (Other)
  Sender: FDA-Public Use
  Company Number: None

PATIENT
  Age: 7 Year
  Sex: Male
  Weight: 33.5662 kg

DRUGS (1)
  1. SINGULAIR [Suspect]
     Indication: MULTIPLE ALLERGIES
     Dosage: 5MG  1X NIGHTLY  PO
     Route: 048
     Dates: start: 20050101, end: 20080203

REACTIONS (3)
  - ABDOMINAL PAIN UPPER [None]
  - HEADACHE [None]
  - MUSCLE SPASMS [None]
